FAERS Safety Report 15862331 (Version 4)
Quarter: 2019Q2

REPORT INFORMATION
  Report Type: Report from Study
  Country: US (occurrence: US)
  Receive Date: 20190124
  Receipt Date: 20190620
  Transmission Date: 20190711
  Serious: Yes (Other)
  Sender: FDA-Public Use
  Company Number: PHEH2019US003188

PATIENT
  Sex: Female

DRUGS (1)
  1. ENTRESTO [Suspect]
     Active Substance: SACUBITRIL\VALSARTAN
     Indication: CARDIAC FAILURE
     Route: 048

REACTIONS (7)
  - Cardiac disorder [Unknown]
  - Stress [Unknown]
  - Blood pressure increased [Unknown]
  - Arthralgia [Unknown]
  - Myocardial infarction [Unknown]
  - Headache [Unknown]
  - Hypotension [Unknown]
